FAERS Safety Report 15993357 (Version 3)
Quarter: 2019Q2

REPORT INFORMATION
  Report Type: Report from Study
  Country: BR (occurrence: BR)
  Receive Date: 20190222
  Receipt Date: 20190612
  Transmission Date: 20190711
  Serious: Yes (Hospitalization, Other)
  Sender: FDA-Public Use
  Company Number: PHHY2018BR033561

PATIENT
  Age: 70 Year
  Sex: Female
  Weight: 42 kg

DRUGS (2)
  1. ACLASTA [Suspect]
     Active Substance: ZOLEDRONIC ACID
     Indication: OSTEITIS DEFORMANS
     Dosage: 1 DF (5 MG/100 ML), Q12MO
     Route: 042
     Dates: start: 20180604, end: 20180604
  2. ACLASTA [Suspect]
     Active Substance: ZOLEDRONIC ACID
     Indication: OSTEOPOROSIS
     Dosage: 1 DF (5 MG/100 ML), Q12MO
     Route: 042
     Dates: start: 20170725

REACTIONS (18)
  - Condition aggravated [Not Recovered/Not Resolved]
  - Malaise [Unknown]
  - Osteoporosis [Not Recovered/Not Resolved]
  - Constipation [Not Recovered/Not Resolved]
  - Weight decreased [Not Recovered/Not Resolved]
  - Dizziness [Unknown]
  - Poor venous access [Unknown]
  - Drug ineffective [Unknown]
  - Bone density decreased [Not Recovered/Not Resolved]
  - Abdominal distension [Unknown]
  - Gastrointestinal hypomotility [Not Recovered/Not Resolved]
  - Eating disorder [Not Recovered/Not Resolved]
  - Renal mass [Unknown]
  - Benign gastrointestinal neoplasm [Unknown]
  - Gait disturbance [Not Recovered/Not Resolved]
  - Deafness [Not Recovered/Not Resolved]
  - Syncope [Unknown]
  - Pain [Unknown]

NARRATIVE: CASE EVENT DATE: 20170725
